FAERS Safety Report 10869026 (Version 4)
Quarter: 2015Q2

REPORT INFORMATION
  Report Type: Spontaneous
  Country: NZ (occurrence: NZ)
  Receive Date: 20150225
  Receipt Date: 20150605
  Transmission Date: 20150821
  Serious: Yes (Hospitalization, Other)
  Sender: FDA-Public Use
  Company Number: NZ-ABBVIE-15P-118-1352203-00

PATIENT
  Age: 51 Year
  Sex: Female

DRUGS (9)
  1. CEFUROXIME. [Suspect]
     Active Substance: CEFUROXIME
     Indication: CHOLECYSTECTOMY
     Route: 065
     Dates: start: 2012
  2. CO-RENITEC [Concomitant]
     Active Substance: ENALAPRIL\HYDROCHLOROTHIAZIDE
     Indication: PRODUCT USED FOR UNKNOWN INDICATION
     Route: 048
  3. ENALAPRIL W/HYDROCHLOROTHIAZIDE [Concomitant]
     Active Substance: ENALAPRIL\HYDROCHLOROTHIAZIDE
     Indication: HYPERTENSION
     Route: 048
  4. METRONIDAZOLE. [Suspect]
     Active Substance: METRONIDAZOLE
     Indication: PRODUCT USED FOR UNKNOWN INDICATION
     Route: 042
     Dates: start: 20120609, end: 20120609
  5. PARACETAMOL [Suspect]
     Active Substance: ACETAMINOPHEN
     Indication: PRODUCT USED FOR UNKNOWN INDICATION
     Route: 048
  6. TRAMADOL [Concomitant]
     Active Substance: TRAMADOL
     Indication: PRODUCT USED FOR UNKNOWN INDICATION
  7. ULTANE [Suspect]
     Active Substance: SEVOFLURANE
     Indication: PRODUCT USED FOR UNKNOWN INDICATION
     Route: 055
     Dates: start: 20120609, end: 20120609
  8. TRIAZOLAM. [Concomitant]
     Active Substance: TRIAZOLAM
     Indication: SLEEP DISORDER
     Route: 048
  9. PARECOXIB [Concomitant]
     Active Substance: PARECOXIB
     Indication: CHOLECYSTECTOMY
     Dates: start: 2012

REACTIONS (9)
  - Hepatocellular injury [Recovered/Resolved]
  - Haemangioma [Unknown]
  - Female genital operation [Unknown]
  - Jaundice [Recovered/Resolved]
  - Transaminases increased [Recovered/Resolved]
  - Hepatic enzyme increased [Recovered/Resolved]
  - Liver function test abnormal [Recovered/Resolved]
  - Nausea [Recovered/Resolved]
  - Hypertension [Unknown]

NARRATIVE: CASE EVENT DATE: 20120614
